FAERS Safety Report 22619332 (Version 2)
Quarter: 2024Q3

REPORT INFORMATION
  Report Type: Spontaneous
  Country: ES (occurrence: ES)
  Receive Date: 20230620
  Receipt Date: 20240711
  Transmission Date: 20241016
  Serious: No
  Sender: PIERRE FABRE MEDICAMENT
  Company Number: ES-PFM-2023-01344

PATIENT
  Sex: Female
  Weight: 3.7 kg

DRUGS (5)
  1. PROPRANOLOL HYDROCHLORIDE [Suspect]
     Active Substance: PROPRANOLOL HYDROCHLORIDE
     Indication: Infantile haemangioma
     Dosage: 1 MG/KG, BID (2/DAY), FOR THE FIRST WEEK
     Route: 065
     Dates: start: 20210202
  2. PROPRANOLOL HYDROCHLORIDE [Suspect]
     Active Substance: PROPRANOLOL HYDROCHLORIDE
     Dosage: 2 MG/KG, BID (2/DAY), FOR SECOND WEEK
     Route: 065
  3. PROPRANOLOL HYDROCHLORIDE [Suspect]
     Active Substance: PROPRANOLOL HYDROCHLORIDE
     Dosage: 3 MG/KG, BID (2/DAY), FOR SECOND WEEK (14 DAYS FROM THE START OF TREATMENT)
     Route: 065
     Dates: start: 20210216
  4. UNSPECIFIED INGREDIENT [Concomitant]
     Active Substance: UNSPECIFIED INGREDIENT
     Indication: Cardiac discomfort
     Dosage: UNK
     Route: 065
  5. PREDNISOLONE [Concomitant]
     Active Substance: PREDNISOLONE
     Indication: Cardiac discomfort
     Dosage: 2 MG/KG/D
     Route: 048
     Dates: start: 202112, end: 202201

REACTIONS (3)
  - Drug ineffective [Unknown]
  - Product use issue [Unknown]
  - Off label use [Unknown]
